FAERS Safety Report 9559626 (Version 1)
Quarter: 2013Q3

REPORT INFORMATION
  Report Type: Spontaneous
  Country: US (occurrence: None)
  Receive Date: 20130906
  Receipt Date: 20130906
  Transmission Date: 20140515
  Serious: Yes (Other)
  Sender: FDA-Public Use
  Company Number: 163-POMAL-13072332

PATIENT
  Age: 64 Year
  Sex: Female
  Weight: 136 kg

DRUGS (11)
  1. POMALYST [Suspect]
     Indication: PLASMA CELL MYELOMA
     Dosage: 21 IN 21 D
     Route: 048
     Dates: start: 20130621
  2. DEXAMETHASONE (DEXAMETHASONE) (UNKNOWN) [Concomitant]
  3. TRILEPTAL (TABLETS) [Concomitant]
  4. ZOMETHA (ZOLENDRONIC ACID) [Concomitant]
  5. ONDANSTREON HCL (ONDANSETRON HYDROCHLORIDE) [Concomitant]
  6. SIMVASTATIN(SIMVASTATIN) [Concomitant]
  7. ACYCLOVIR (ACICLOVIR) (TABLET) [Concomitant]
  8. HYDROCODONE-ACETAMINOPHEN [Concomitant]
  9. NEXIUM (ESOMEPRAZOLE) (CAPSULES) [Concomitant]
  10. LOSARTAN POTASSIUM (LOSARTAN POTASSIUM) [Concomitant]
  11. POTASSIUM (POTASSIUM) [Concomitant]

REACTIONS (2)
  - Blood pressure increased [None]
  - Diarrhoea [None]
